FAERS Safety Report 5019054-7 (Version None)
Quarter: 2006Q2

REPORT INFORMATION
  Report Type: 
  Country: None (occurrence: None)
  Receive Date: 20060526
  Receipt Date: 20060526
  Transmission Date: 20061013
  Serious: No
  Sender: FDA-Public Use
  Company Number: None

PATIENT
  Sex: Male
  Weight: 84.5 kg

DRUGS (11)
  1. RITUXIMAB  375 MG/M2 [Suspect]
     Indication: LYMPHOCYTE COUNT
     Dosage: 375MG/M2  375 MG/
     Dates: start: 20031030, end: 20041213
  2. ATENOLOL [Concomitant]
  3. LIPITOR [Concomitant]
  4. SYNTHROID [Concomitant]
  5. NORVASC [Concomitant]
  6. CLARINEX [Concomitant]
  7. PROTONIX [Concomitant]
  8. NASONEX [Concomitant]
  9. XANAX [Concomitant]
  10. VICODIN [Concomitant]
  11. LIDOCAINE HCL VISCOUS [Concomitant]

REACTIONS (2)
  - ANAEMIA [None]
  - MYELODYSPLASTIC SYNDROME [None]
